FAERS Safety Report 9465472 (Version 1)
Quarter: 2013Q3

REPORT INFORMATION
  Report Type: Spontaneous
  Country: DE (occurrence: DE)
  Receive Date: 20130820
  Receipt Date: 20130820
  Transmission Date: 20140515
  Serious: Yes (Hospitalization)
  Sender: FDA-Public Use
  Company Number: DE-AMGEN-DEUSP2013058026

PATIENT
  Sex: Male

DRUGS (2)
  1. NEULASTA [Suspect]
     Indication: PRODUCT USED FOR UNKNOWN INDICATION
     Dosage: UNK
     Route: 065
  2. CHEMOTHERAPEUTICS [Concomitant]
     Dosage: UNK

REACTIONS (1)
  - Leukopenia [Unknown]
